FAERS Safety Report 10694192 (Version 2)
Quarter: 2015Q1

REPORT INFORMATION
  Report Type: Spontaneous
  Country: US (occurrence: US)
  Receive Date: 20150106
  Receipt Date: 20150106
  Transmission Date: 20150721
  Serious: No
  Sender: FDA-Public Use
  Company Number: US-BAUSCH-SYM-2013-04837

PATIENT
  Age: 56 Year
  Sex: Male

DRUGS (2)
  1. XENAZINE [Suspect]
     Active Substance: TETRABENAZINE
     Indication: DYSKINESIA
     Dosage: 1 TABLET EVERY MORNING
     Route: 048
     Dates: start: 20130216
  2. SEROQUEL [Suspect]
     Active Substance: QUETIAPINE FUMARATE

REACTIONS (1)
  - Dry mouth [Unknown]

NARRATIVE: CASE EVENT DATE: 20131202
